FAERS Safety Report 13737081 (Version 3)
Quarter: 2017Q3

REPORT INFORMATION
  Report Type: Spontaneous
  Country: US (occurrence: US)
  Receive Date: 20170710
  Receipt Date: 20170712
  Transmission Date: 20171127
  Serious: Yes (Other)
  Sender: FDA-Public Use
  Company Number: US-CELGENEUS-USA-20170700111

PATIENT
  Age: 70 Year
  Sex: Female

DRUGS (1)
  1. OTEZLA [Suspect]
     Active Substance: APREMILAST
     Indication: PSORIASIS
     Dosage: 60 MILLIGRAM
     Route: 048
     Dates: start: 20150622, end: 20170119

REACTIONS (4)
  - Diarrhoea [Unknown]
  - Seizure [Recovered/Resolved]
  - Headache [Unknown]
  - Psoriasis [Unknown]

NARRATIVE: CASE EVENT DATE: 2017
